FAERS Safety Report 17794356 (Version 1)
Quarter: 2020Q2

REPORT INFORMATION
  Report Type: Report from Study
  Country: IT (occurrence: IT)
  Receive Date: 20200515
  Receipt Date: 20200515
  Transmission Date: 20200714
  Serious: Yes (Hospitalization)
  Sender: FDA-Public Use
  Company Number: IT-MYLANLABS-2020M1047865

PATIENT
  Age: 58 Year
  Sex: Male

DRUGS (1)
  1. BRUFEN? [Suspect]
     Active Substance: IBUPROFEN
     Indication: MUSCULOSKELETAL PAIN
     Dosage: UNK
     Dates: start: 20191212

REACTIONS (6)
  - Abdominal pain upper [Unknown]
  - Vomiting [Unknown]
  - Pallor [Unknown]
  - Gastric haemorrhage [Unknown]
  - Syncope [Unknown]
  - Haematemesis [Unknown]

NARRATIVE: CASE EVENT DATE: 20191215
